FAERS Safety Report 4688544-9 (Version None)
Quarter: 2005Q2

REPORT INFORMATION
  Report Type: 
  Country: None (occurrence: None)
  Receive Date: 20050609
  Receipt Date: 20050527
  Transmission Date: 20051028
  Serious: Yes (Death, Hospitalization)
  Sender: FDA-Public Use
  Company Number: 2005073617

PATIENT
  Age: 74 Year
  Sex: Male

DRUGS (10)
  1. CABERGOLINE [Suspect]
     Indication: PARKINSON'S DISEASE
     Dosage: SEE IMAGE
     Route: 048
     Dates: start: 20040313, end: 20040917
  2. CABERGOLINE [Suspect]
     Indication: PARKINSON'S DISEASE
     Dosage: SEE IMAGE
     Route: 048
     Dates: start: 20040918, end: 20050429
  3. CABERGOLINE [Suspect]
     Indication: PARKINSON'S DISEASE
     Dosage: SEE IMAGE
     Route: 048
     Dates: start: 20050430, end: 20050509
  4. DROXIDOPA [Concomitant]
  5. NEODOPASOL (BENSERAZIDE HYDROCHLORIDE, LEVODOPA) [Concomitant]
  6. DEPAS (ETIZOLAM) [Concomitant]
  7. NAUZELIN (DOMPERIDONE) [Concomitant]
  8. LASIX [Concomitant]
  9. LANIRAPID (METILDIGOXIN) [Concomitant]
  10. WARFARIN [Concomitant]

REACTIONS (6)
  - ANURIA [None]
  - BLOOD PRESSURE DECREASED [None]
  - DEPRESSED LEVEL OF CONSCIOUSNESS [None]
  - INTERSTITIAL LUNG DISEASE [None]
  - RESPIRATORY ARREST [None]
  - RESPIRATORY FAILURE [None]
